FAERS Safety Report 4762840-9 (Version None)
Quarter: 2005Q3

REPORT INFORMATION
  Report Type: 
  Country: None (occurrence: None)
  Receive Date: 20050906
  Receipt Date: 20050823
  Transmission Date: 20060218
  Serious: Yes (Death)
  Sender: FDA-Public Use
  Company Number: MK200508-0334-1

PATIENT
  Sex: Male

DRUGS (2)
  1. NALTREXONE HCL [Suspect]
     Indication: DEPENDENCE
     Dosage: 50 MG
     Dates: start: 20010101
  2. HEROIN [Suspect]
     Indication: DRUG ABUSER
     Dosage: IV
     Route: 042
     Dates: start: 20010101

REACTIONS (2)
  - OVERDOSE [None]
  - TREATMENT NONCOMPLIANCE [None]
